FAERS Safety Report 16932658 (Version 1)
Quarter: 2019Q4

REPORT INFORMATION
  Report Type: Spontaneous
  Country: US (occurrence: US)
  Receive Date: 20191018
  Receipt Date: 20191018
  Transmission Date: 20200122
  Serious: Yes (Other)
  Sender: FDA-Public Use
  Company Number: US-SUN PHARMACEUTICAL INDUSTRIES LTD-2019R1-224067

PATIENT
  Age: 70 Year
  Sex: Female

DRUGS (1)
  1. ILUMYA [Suspect]
     Active Substance: TILDRAKIZUMAB-ASMN
     Indication: PSORIASIS
     Dosage: UNK
     Route: 065
     Dates: start: 201909

REACTIONS (6)
  - Vomiting [Unknown]
  - Blood urine present [Unknown]
  - Diarrhoea [Unknown]
  - Dyspnoea [Unknown]
  - Loss of personal independence in daily activities [Unknown]
  - Rash [Unknown]

NARRATIVE: CASE EVENT DATE: 2019
